FAERS Safety Report 23245270 (Version 2)
Quarter: 2023Q4

REPORT INFORMATION
  Report Type: Report from Study
  Country: IT (occurrence: IT)
  Receive Date: 20231130
  Receipt Date: 20231204
  Transmission Date: 20240110
  Serious: Yes (Death)
  Sender: FDA-Public Use
  Company Number: IT-009507513-2301ITA001530

PATIENT
  Age: 36 Year
  Sex: Female

DRUGS (10)
  1. PACLITAXEL [Suspect]
     Active Substance: PACLITAXEL
     Indication: Neoadjuvant therapy
     Dosage: UNK
     Route: 065
     Dates: start: 20220427
  2. PACLITAXEL [Suspect]
     Active Substance: PACLITAXEL
     Indication: Triple negative breast cancer
  3. CYCLOPHOSPHAMIDE [Suspect]
     Active Substance: CYCLOPHOSPHAMIDE
     Indication: Neoadjuvant therapy
     Dosage: 4 CYCLES ADMINISTERED
     Route: 065
  4. CYCLOPHOSPHAMIDE [Suspect]
     Active Substance: CYCLOPHOSPHAMIDE
     Indication: Triple negative breast cancer
  5. CARBOPLATIN [Suspect]
     Active Substance: CARBOPLATIN
     Indication: Neoadjuvant therapy
     Dosage: UNK
     Route: 065
     Dates: start: 20220427
  6. CARBOPLATIN [Suspect]
     Active Substance: CARBOPLATIN
     Indication: Triple negative breast cancer
  7. PEMBROLIZUMAB [Suspect]
     Active Substance: PEMBROLIZUMAB
     Indication: Neoadjuvant therapy
     Dosage: 200 MILLIGRAM
     Route: 042
     Dates: start: 20220104, end: 20230110
  8. PEMBROLIZUMAB [Suspect]
     Active Substance: PEMBROLIZUMAB
     Indication: Triple negative breast cancer
     Dosage: 200 MILLIGRAM
     Route: 042
     Dates: start: 20220520
  9. EPIRUBICIN [Suspect]
     Active Substance: EPIRUBICIN
     Indication: Neoadjuvant therapy
     Dosage: 4 CYCLES ADMINISTERED
     Route: 065
  10. EPIRUBICIN [Suspect]
     Active Substance: EPIRUBICIN
     Indication: Triple negative breast cancer

REACTIONS (2)
  - Malignant neoplasm progression [Fatal]
  - Intentional product misuse [Unknown]

NARRATIVE: CASE EVENT DATE: 20230118
